FAERS Safety Report 5891024-6 (Version None)
Quarter: 2008Q3

REPORT INFORMATION
  Report Type: 
  Country: None (occurrence: None)
  Receive Date: 20080922
  Receipt Date: 20080915
  Transmission Date: 20090109
  Serious: Yes (Other)
  Sender: FDA-Public Use
  Company Number: B0537692A

PATIENT
  Age: 79 Year
  Sex: Male

DRUGS (2)
  1. SERETIDE [Suspect]
     Indication: ACUTE RESPIRATORY FAILURE
     Route: 055
     Dates: start: 20080612, end: 20080612
  2. TAVANIC [Suspect]
     Indication: BRONCHITIS
     Dosage: 500MG PER DAY
     Route: 048
     Dates: start: 20080612, end: 20080612

REACTIONS (3)
  - DIZZINESS [None]
  - DYSPNOEA [None]
  - VOMITING [None]
